FAERS Safety Report 4814388-0 (Version None)
Quarter: 2005Q4

REPORT INFORMATION
  Report Type: 
  Country: None (occurrence: None)
  Receive Date: 20051028
  Receipt Date: 20050817
  Transmission Date: 20060501
  Serious: No
  Sender: FDA-Public Use
  Company Number: US-GLAXOSMITHKLINE-A0570620A

PATIENT
  Age: 79 Year
  Sex: Female

DRUGS (5)
  1. ADVAIR DISKUS 100/50 [Suspect]
     Indication: CHRONIC OBSTRUCTIVE PULMONARY DISEASE
     Dosage: 150MCG TWICE PER DAY
     Route: 055
     Dates: start: 20050709, end: 20050806
  2. LOTREL [Concomitant]
  3. TOPROL-XL [Concomitant]
  4. MIACALCIN [Concomitant]
  5. ASPIRIN [Concomitant]

REACTIONS (2)
  - ORAL DISCOMFORT [None]
  - ORAL PAIN [None]
